FAERS Safety Report 5566676-0 (Version None)
Quarter: 2007Q4

REPORT INFORMATION
  Report Type: 
  Country: None (occurrence: None)
  Receive Date: 20071217
  Receipt Date: 20071217
  Transmission Date: 20080405
  Serious: No
  Sender: FDA-Public Use
  Company Number: None

PATIENT
  Age: 68 Year
  Sex: Male

DRUGS (1)
  1. MOMETASONE FUROATE [Suspect]
     Indication: ASTHMA
     Dosage: 220MCG EVERY DAY INHALE
     Route: 055
     Dates: start: 20070605, end: 20070910

REACTIONS (5)
  - HEADACHE [None]
  - NAUSEA [None]
  - STOMACH DISCOMFORT [None]
  - TREMOR [None]
  - VOMITING [None]
